FAERS Safety Report 18881823 (Version 3)
Quarter: 2021Q1

REPORT INFORMATION
  Report Type: Report from Study
  Country: US (occurrence: US)
  Receive Date: 20210211
  Receipt Date: 20210310
  Transmission Date: 20210420
  Serious: Yes (Hospitalization, Other)
  Sender: FDA-Public Use
  Company Number: US-BIOVITRUM-2020US6166

PATIENT
  Sex: Female

DRUGS (1)
  1. KINERET [Suspect]
     Active Substance: ANAKINRA
     Indication: RHEUMATOID ARTHRITIS
     Route: 058
     Dates: start: 20190416

REACTIONS (8)
  - Communication disorder [Unknown]
  - Diverticulum oesophageal [Unknown]
  - Hypertension [Unknown]
  - Dehydration [Unknown]
  - Headache [Unknown]
  - COVID-19 [Unknown]
  - Illness [Unknown]
  - Coma [Unknown]
